FAERS Safety Report 6544900-5 (Version None)
Quarter: 2010Q1

REPORT INFORMATION
  Report Type: 
  Country: None (occurrence: None)
  Receive Date: 20100115
  Receipt Date: 20091210
  Transmission Date: 20100710
  Serious: Yes (Other)
  Sender: FDA-Public Use
  Company Number: DSA_41902_2009

PATIENT
  Sex: Female

DRUGS (22)
  1. XENAZINE [Suspect]
     Indication: CHOREA
     Dosage: (25 MG BID) ; (12.5 MG IN THE MORNING AND 25 MG NIGHT) ; (DF) ; (12.5 MG BID)
     Dates: start: 20090101, end: 20090101
  2. XENAZINE [Suspect]
     Indication: MITOCHONDRIAL ENZYME DEFICIENCY
     Dosage: (25 MG BID) ; (12.5 MG IN THE MORNING AND 25 MG NIGHT) ; (DF) ; (12.5 MG BID)
     Dates: start: 20090101, end: 20090101
  3. XENAZINE [Suspect]
     Indication: CHOREA
     Dosage: (25 MG BID) ; (12.5 MG IN THE MORNING AND 25 MG NIGHT) ; (DF) ; (12.5 MG BID)
     Dates: start: 20090926, end: 20090101
  4. XENAZINE [Suspect]
     Indication: MITOCHONDRIAL ENZYME DEFICIENCY
     Dosage: (25 MG BID) ; (12.5 MG IN THE MORNING AND 25 MG NIGHT) ; (DF) ; (12.5 MG BID)
     Dates: start: 20090926, end: 20090101
  5. XENAZINE [Suspect]
     Indication: CHOREA
     Dosage: (25 MG BID) ; (12.5 MG IN THE MORNING AND 25 MG NIGHT) ; (DF) ; (12.5 MG BID)
     Dates: start: 20090101
  6. XENAZINE [Suspect]
     Indication: MITOCHONDRIAL ENZYME DEFICIENCY
     Dosage: (25 MG BID) ; (12.5 MG IN THE MORNING AND 25 MG NIGHT) ; (DF) ; (12.5 MG BID)
     Dates: start: 20090101
  7. XENAZINE [Suspect]
     Indication: CHOREA
     Dosage: (25 MG BID) ; (12.5 MG IN THE MORNING AND 25 MG NIGHT) ; (DF) ; (12.5 MG BID)
     Dates: start: 20090101
  8. XENAZINE [Suspect]
     Indication: MITOCHONDRIAL ENZYME DEFICIENCY
     Dosage: (25 MG BID) ; (12.5 MG IN THE MORNING AND 25 MG NIGHT) ; (DF) ; (12.5 MG BID)
     Dates: start: 20090101
  9. DECADRON [Concomitant]
  10. ZANTAC /00550802/ [Concomitant]
  11. IMMUNE GLOBULIN INTRAVENOUS (HUMAN) [Concomitant]
  12. LEVOCARNITINE [Concomitant]
  13. PAXIL [Concomitant]
  14. LEUCOVORIN CALCIUM [Concomitant]
  15. BACTRIM [Concomitant]
  16. LOVENOX [Concomitant]
  17. METHYLPREDNISOLONE [Concomitant]
  18. FOSAMAX [Concomitant]
  19. PREMARIN [Concomitant]
  20. COENZYME Q10 /03913201/ [Concomitant]
  21. TYLENOL (CAPLET) [Concomitant]
  22. BENADRYL [Concomitant]

REACTIONS (6)
  - CRYING [None]
  - DISCOMFORT [None]
  - DRUG INTOLERANCE [None]
  - EMOTIONAL DISORDER [None]
  - FATIGUE [None]
  - SPEECH DISORDER [None]
